FAERS Safety Report 6357200-3 (Version None)
Quarter: 2009Q3

REPORT INFORMATION
  Report Type: 
  Country: None (occurrence: None)
  Receive Date: 20090911
  Receipt Date: 20090827
  Transmission Date: 20100115
  Serious: Yes (Hospitalization)
  Sender: FDA-Public Use
  Company Number: A-US2009-27183

PATIENT
  Age: 88 Year
  Sex: Male

DRUGS (1)
  1. TRACLEER [Suspect]
     Indication: PULMONARY ARTERIAL HYPERTENSION
     Dosage: ORAL
     Route: 048
     Dates: start: 20090505, end: 20090806

REACTIONS (4)
  - DYSPNOEA [None]
  - LIVER INJURY [None]
  - RENAL IMPAIRMENT [None]
  - RENAL INJURY [None]
